FAERS Safety Report 17229127 (Version 1)
Quarter: 2019Q4

REPORT INFORMATION
  Report Type: Spontaneous
  Country: US (occurrence: US)
  Receive Date: 20191210
  Receipt Date: 20191210
  Transmission Date: 20200122
  Serious: Yes (Hospitalization)
  Sender: FDA-Public Use
  Company Number: None

PATIENT
  Sex: Female

DRUGS (1)
  1. OCTREOTIDE. [Suspect]
     Active Substance: OCTREOTIDE
     Indication: CROHN^S DISEASE
     Dosage: STRENGTH 50MCG/ML
     Route: 058
     Dates: start: 20191002

REACTIONS (2)
  - Therapeutic product effect incomplete [None]
  - Product distribution issue [None]
